FAERS Safety Report 10618027 (Version 2)
Quarter: 2015Q2

REPORT INFORMATION
  Report Type: Spontaneous
  Country: IT (occurrence: IT)
  Receive Date: 20141202
  Receipt Date: 20150414
  Transmission Date: 20150821
  Serious: Yes (Hospitalization)
  Sender: FDA-Public Use
  Company Number: IT-ROCHE-1500406

PATIENT
  Age: 67 Year
  Sex: Female

DRUGS (4)
  1. PERJETA [Suspect]
     Active Substance: PERTUZUMAB
     Indication: METAPLASTIC BREAST CARCINOMA
     Dosage: 420 MG- CONCENTRATE FOR SOLUTION FOR INFUSION
     Route: 042
     Dates: start: 20141027, end: 20141027
  2. TAXOTERE [Suspect]
     Active Substance: DOCETAXEL
     Indication: BREAST CANCER METASTATIC
     Dosage: 80 MG CONCENTRATE FOR IV INFUSION + SOLVENT
     Route: 042
     Dates: start: 20141027, end: 20141027
  3. TAXOTERE [Suspect]
     Active Substance: DOCETAXEL
     Dosage: 20 MG CONCENTRATE FOR IV INFUSION + SOLVENT
     Route: 042
     Dates: start: 20141027, end: 20141027
  4. HERCEPTIN [Suspect]
     Active Substance: TRASTUZUMAB
     Indication: BREAST CANCER METASTATIC
     Dosage: 150 MG POWDER FOR INFUSIONAL SOLUTION
     Route: 040
     Dates: start: 20141027, end: 20141027

REACTIONS (2)
  - Tremor [Recovered/Resolved]
  - Pyrexia [Recovered/Resolved]

NARRATIVE: CASE EVENT DATE: 20141027
